FAERS Safety Report 14768937 (Version 10)
Quarter: 2020Q4

REPORT INFORMATION
  Report Type: Other
  Country: CA (occurrence: CA)
  Receive Date: 20180417
  Receipt Date: 20201015
  Transmission Date: 20210113
  Serious: Yes (Hospitalization, Disabling, Other)
  Sender: FDA-Public Use
  Company Number: CA-ROCHE-2102651

PATIENT
  Age: 53 Year
  Sex: Female

DRUGS (2)
  1. OCREVUS [Suspect]
     Active Substance: OCRELIZUMAB
     Indication: RELAPSING-REMITTING MULTIPLE SCLEROSIS
     Dosage: 1ST INFUSION?300 MG DAY 0 AND DAY 14, THEN 600 MG EVERY 6MONTHS?SUBSEQUENT DOSE:  /MAR/2018, 03/APR/
     Route: 042
     Dates: start: 20180319
  2. GILENYA [Suspect]
     Active Substance: FINGOLIMOD HYDROCHLORIDE
     Indication: RELAPSING-REMITTING MULTIPLE SCLEROSIS
     Route: 048
     Dates: start: 20140801, end: 20171220

REACTIONS (21)
  - JC virus CSF test positive [Unknown]
  - Intermittent claudication [Unknown]
  - Uhthoff^s phenomenon [Not Recovered/Not Resolved]
  - Aphasia [Not Recovered/Not Resolved]
  - Confusional state [Not Recovered/Not Resolved]
  - Muscle spasticity [Not Recovered/Not Resolved]
  - Dysphagia [Not Recovered/Not Resolved]
  - Ataxia [Not Recovered/Not Resolved]
  - Pyrexia [Recovering/Resolving]
  - Neurological symptom [Not Recovered/Not Resolved]
  - Lymphocyte count decreased [Recovering/Resolving]
  - Dysarthria [Recovering/Resolving]
  - Gait disturbance [Recovering/Resolving]
  - Fine motor skill dysfunction [Not Recovered/Not Resolved]
  - Malaise [Unknown]
  - Asthenia [Not Recovered/Not Resolved]
  - Hemiparesis [Not Recovered/Not Resolved]
  - Monoplegia [Not Recovered/Not Resolved]
  - Progressive multifocal leukoencephalopathy [Recovered/Resolved with Sequelae]
  - Clumsiness [Not Recovered/Not Resolved]
  - Limb discomfort [Not Recovered/Not Resolved]

NARRATIVE: CASE EVENT DATE: 201709
